FAERS Safety Report 26077239 (Version 1)
Quarter: 2025Q4

REPORT INFORMATION
  Report Type: Spontaneous
  Country: US (occurrence: None)
  Receive Date: 20251121
  Receipt Date: 20251121
  Transmission Date: 20260118
  Serious: Yes (Other)
  Sender: FDA-CTU
  Company Number: None

PATIENT
  Age: 74 Year
  Sex: Female

DRUGS (11)
  1. LENALIDOMIDE [Suspect]
     Active Substance: LENALIDOMIDE
     Indication: Plasma cell myeloma
     Dosage: TAKE 1 CAPSULE BY MOUTH EVERY DAY FOR 21 DAYS FOLLOWED BY 7 DAYS OFF?
     Route: 048
     Dates: start: 20230929
  2. ACYCLOVIR [Concomitant]
     Active Substance: ACYCLOVIR
  3. ACYCLOVIR TAB 800MG [Concomitant]
  4. ASCORBIC ACD TAB 500MG [Concomitant]
  5. ASPIRIN CHW 81MG [Concomitant]
  6. BIOTIN CAP1MG [Concomitant]
  7. CALCIUM CIT/TAB VIT D [Concomitant]
  8. CEPHALEXIN [Concomitant]
     Active Substance: CEPHALEXIN
  9. COQ10 CAP 100MG [Concomitant]
  10. CRANBERRY TAB 450MG [Concomitant]
  11. GLUCOS/CHOND CAP 500-400 [Concomitant]

REACTIONS (2)
  - Knee arthroplasty [None]
  - Therapy interrupted [None]

NARRATIVE: CASE EVENT DATE: 20251110
